FAERS Safety Report 7973860-5 (Version None)
Quarter: 2011Q4

REPORT INFORMATION
  Report Type: 
  Country: None (occurrence: None)
  Receive Date: 20111213
  Receipt Date: 20111202
  Transmission Date: 20120403
  Serious: Yes (Other)
  Sender: FDA-Public Use
  Company Number: ES-ROCHE-1017540

PATIENT
  Sex: Female

DRUGS (2)
  1. HERCEPTIN [Suspect]
     Indication: BREAST CANCER
     Dosage: LOADING DOSE ADMINISTERED
     Route: 042
     Dates: start: 20111020, end: 20111116
  2. LAPATINIB [Suspect]
     Indication: BREAST CANCER
     Route: 048

REACTIONS (1)
  - DYSKINESIA [None]
